FAERS Safety Report 15335318 (Version 3)
Quarter: 2019Q1

REPORT INFORMATION
  Report Type: Spontaneous
  Country: DE (occurrence: DE)
  Receive Date: 20180830
  Receipt Date: 20190308
  Transmission Date: 20190417
  Serious: No
  Sender: FDA-Public Use
  Company Number: PHHY2018DE080614

PATIENT
  Age: 8 Year
  Sex: Female
  Weight: 24.4 kg

DRUGS (13)
  1. METHOTREXAT [Suspect]
     Active Substance: METHOTREXATE
     Dosage: 12.5 MG, QW
     Route: 048
  2. ROACTEMRA [Suspect]
     Active Substance: TOCILIZUMAB
     Dosage: 280 MG, Q2W
     Route: 042
     Dates: start: 20130709
  3. PREDNISON [Concomitant]
     Active Substance: PREDNISONE
     Indication: PRODUCT USED FOR UNKNOWN INDICATION
     Dosage: 3.75 MG, QD
     Route: 048
  4. INDOMETACIN [Concomitant]
     Active Substance: INDOMETHACIN
     Indication: PRODUCT USED FOR UNKNOWN INDICATION
     Dosage: 25 MG, QD
     Route: 048
  5. ROACTEMRA [Suspect]
     Active Substance: TOCILIZUMAB
     Dosage: 280 MG, Q2W
     Route: 042
     Dates: start: 20130430
  6. ROACTEMRA [Suspect]
     Active Substance: TOCILIZUMAB
     Dosage: 280 MG, Q2W
     Route: 042
     Dates: start: 20130611
  7. ROACTEMRA [Suspect]
     Active Substance: TOCILIZUMAB
     Dosage: 280 MG, Q2W
     Route: 042
     Dates: start: 20130723
  8. ROACTEMRA [Suspect]
     Active Substance: TOCILIZUMAB
     Dosage: 360 MG, Q2W
     Route: 042
     Dates: start: 20140101
  9. ROACTEMRA [Suspect]
     Active Substance: TOCILIZUMAB
     Indication: STILL^S DISEASE
     Dosage: 320 MG, Q3W
     Route: 042
     Dates: start: 20121001
  10. METHOTREXAT [Suspect]
     Active Substance: METHOTREXATE
     Indication: STILL^S DISEASE
     Dosage: 10 MG, QW
     Route: 058
  11. IBUPROFEN. [Suspect]
     Active Substance: IBUPROFEN
     Indication: STILL^S DISEASE
     Dosage: 1200 MG, UNK
     Route: 065
  12. ROACTEMRA [Suspect]
     Active Substance: TOCILIZUMAB
     Dosage: 280 MG, Q2W
     Route: 042
     Dates: start: 20130625
  13. FOLIC ACID. [Concomitant]
     Active Substance: FOLIC ACID
     Indication: PRODUCT USED FOR UNKNOWN INDICATION
     Dosage: 5 MG, QW
     Route: 048

REACTIONS (7)
  - Upper respiratory tract infection [Recovered/Resolved]
  - Aphthous ulcer [Recovered/Resolved]
  - Visual impairment [Recovered/Resolved]
  - Lyme disease [Recovered/Resolved]
  - Otitis media [Recovered/Resolved]
  - Neutropenia [Unknown]
  - Gastroenteritis [Recovered/Resolved]

NARRATIVE: CASE EVENT DATE: 20130710
